FAERS Safety Report 5858422-8 (Version None)
Quarter: 2008Q3

REPORT INFORMATION
  Report Type: 
  Country: None (occurrence: None)
  Receive Date: 20080822
  Receipt Date: 20080814
  Transmission Date: 20090109
  Serious: Yes (Other)
  Sender: FDA-Public Use
  Company Number: GXKR2008GB07701

PATIENT
  Age: 61 Year
  Sex: Male
  Weight: 100 kg

DRUGS (3)
  1. SIMVASTATIN [Suspect]
     Indication: BLOOD CHOLESTEROL INCREASED
     Dosage: 40 MG, ORAL
     Route: 048
     Dates: start: 20060101, end: 20060101
  2. SIMVASTATIN [Suspect]
     Indication: HYPERTENSION
     Dosage: 40 MG, ORAL
     Route: 048
     Dates: start: 20060101, end: 20060101
  3. LISINOPRIL [Concomitant]

REACTIONS (2)
  - AGGRESSION [None]
  - MOOD SWINGS [None]
